FAERS Safety Report 4981194-6 (Version None)
Quarter: 2006Q1

REPORT INFORMATION
  Report Type: 
  Country: None (occurrence: None)
  Receive Date: 20060227
  Receipt Date: 20050616
  Transmission Date: 20060701
  Serious: Yes (Disabling)
  Sender: FDA-Public Use
  Company Number: WAES 0506USA02616

PATIENT
  Age: 79 Year
  Sex: Female

DRUGS (5)
  1. ZOCOR [Suspect]
     Indication: BLOOD CHOLESTEROL INCREASED
     Dosage: 40 MG DAILY PO
     Route: 048
     Dates: start: 20040116, end: 20050316
  2. MEVACOR [Suspect]
     Dosage: PO
     Route: 048
  3. FOSAMAX [Concomitant]
  4. HYDRODIURIL [Concomitant]
  5. ATENOLOL [Concomitant]

REACTIONS (1)
  - ARTHRALGIA [None]
